FAERS Safety Report 20946979 (Version 3)
Quarter: 2022Q3

REPORT INFORMATION
  Report Type: Report from Study
  Country: US (occurrence: US)
  Receive Date: 20220610
  Receipt Date: 20220713
  Transmission Date: 20221026
  Serious: Yes (Hospitalization, Other)
  Sender: FDA-Public Use
  Company Number: US-TAKEDA-2022TUS024410

PATIENT
  Sex: Female

DRUGS (4)
  1. MARIBAVIR [Suspect]
     Active Substance: MARIBAVIR
     Indication: Cytomegalovirus infection
     Dosage: 400 MILLIGRAM, BID
     Route: 048
     Dates: start: 20220407
  2. MARIBAVIR [Suspect]
     Active Substance: MARIBAVIR
     Indication: Post procedural infection
  3. PREDNISONE [Concomitant]
     Active Substance: PREDNISONE
     Dosage: 5 MILLIGRAM
     Route: 065
  4. GANCICLOVIR [Concomitant]
     Active Substance: GANCICLOVIR
     Dosage: UNK
     Route: 065

REACTIONS (12)
  - Hospitalisation [Unknown]
  - Renal injury [Unknown]
  - Renal failure [Unknown]
  - Weight decreased [Unknown]
  - Body height decreased [Unknown]
  - White blood cell count decreased [Unknown]
  - Therapeutic product effect decreased [Unknown]
  - Peripheral swelling [Unknown]
  - Weight increased [Unknown]
  - Gait disturbance [Unknown]
  - Joint effusion [Unknown]
  - Pain [Unknown]
